FAERS Safety Report 6649703-9 (Version None)
Quarter: 2010Q1

REPORT INFORMATION
  Report Type: 
  Country: None (occurrence: None)
  Receive Date: 20100324
  Receipt Date: 20090819
  Transmission Date: 20100710
  Serious: No
  Sender: FDA-Public Use
  Company Number: US-AMGEN-KDL360832

PATIENT
  Sex: Female

DRUGS (3)
  1. NEULASTA [Suspect]
     Indication: CHEMOTHERAPY
  2. GEMCITABINE HCL [Concomitant]
  3. TAXOTERE [Concomitant]

REACTIONS (1)
  - INJECTION SITE HAEMORRHAGE [None]
